FAERS Safety Report 7116887-8 (Version None)
Quarter: 2010Q4

REPORT INFORMATION
  Report Type: 
  Country: None (occurrence: None)
  Receive Date: 20101122
  Receipt Date: 20101111
  Transmission Date: 20110411
  Serious: Yes (Hospitalization)
  Sender: FDA-Public Use
  Company Number: DE-PFIZER INC-2010153324

PATIENT
  Age: 81 Year
  Sex: Male

DRUGS (7)
  1. PANTOPRAZOLE [Suspect]
     Indication: GASTRITIS
     Dosage: 20 MG, DAILY
     Route: 048
     Dates: start: 20100201
  2. CEFACLOR [Suspect]
     Indication: URINARY TRACT INFECTION
     Dosage: 500 MG, 3X/DAY
     Route: 048
     Dates: start: 20100423, end: 20100506
  3. NEBIVOLOL [Concomitant]
     Indication: HYPERTENSION
     Route: 048
  4. ENALAPRIL [Concomitant]
     Indication: HYPERTENSION
     Dosage: 0.5 DOSAGE FORMS, 1 IN 1 D
     Route: 048
  5. TOREM [Concomitant]
     Indication: HYPERTENSION
     Dosage: 10 MG, 1X/DAY
     Route: 048
  6. TRAMADOL [Concomitant]
     Indication: PAIN
     Dosage: 200 MG, 2X/DAY
     Route: 048
     Dates: start: 20100401
  7. CREON [Concomitant]
     Indication: PANCREATIC DISORDER
     Dosage: 6 DF, DAILY
     Route: 048
     Dates: start: 20100528, end: 20100608

REACTIONS (1)
  - CLOSTRIDIUM DIFFICILE COLITIS [None]
